FAERS Safety Report 18659261 (Version 1)
Quarter: 2020Q4

REPORT INFORMATION
  Report Type: Spontaneous
  Country: US (occurrence: US)
  Receive Date: 20201223
  Receipt Date: 20201223
  Transmission Date: 20210114
  Serious: Yes (Hospitalization)
  Sender: FDA-Public Use
  Company Number: None

PATIENT
  Sex: Male

DRUGS (6)
  1. RIFAMPIN. [Concomitant]
     Active Substance: RIFAMPIN
  2. ACETAMINOPHN [Concomitant]
  3. SILDENAFIL 10MG/ML SUSP [Suspect]
     Active Substance: SILDENAFIL
     Indication: ATRIOVENTRICULAR SEPTAL DEFECT
     Dosage: ?          OTHER ROUTE:BY G-TUBE?
     Dates: start: 20191112
  4. NORDITROPIN [Concomitant]
     Active Substance: SOMATROPIN
  5. ASPIRIN. [Concomitant]
     Active Substance: ASPIRIN
  6. CULTURELLE [Concomitant]
     Active Substance: LACTOBACILLUS RHAMNOSUS

REACTIONS (1)
  - Endocarditis [None]
